FAERS Safety Report 13110449 (Version 1)
Quarter: 2017Q1

REPORT INFORMATION
  Report Type: Spontaneous
  Country: US (occurrence: US)
  Receive Date: 20170112
  Receipt Date: 20170112
  Transmission Date: 20170428
  Serious: No
  Sender: FDA-Public Use
  Company Number: US-ROCHE-GNE319814

PATIENT
  Age: 65 Year
  Sex: Female
  Weight: 86.49 kg

DRUGS (2)
  1. ACTIVASE [Suspect]
     Active Substance: ALTEPLASE
     Dosage: 0.2 MG/HR, UNK
     Route: 042
     Dates: start: 20110601, end: 20110602
  2. ACTIVASE [Suspect]
     Active Substance: ALTEPLASE
     Indication: PERIPHERAL ARTERY OCCLUSION
     Dosage: 0.5 MG/HR, UNK
     Route: 042
     Dates: start: 20110601

REACTIONS (1)
  - Drug ineffective [Unknown]

NARRATIVE: CASE EVENT DATE: 20110602
